FAERS Safety Report 24349000 (Version 1)
Quarter: 2024Q3

REPORT INFORMATION
  Report Type: Spontaneous
  Country: GB (occurrence: GB)
  Receive Date: 20240923
  Receipt Date: 20240923
  Transmission Date: 20241016
  Serious: Yes (Disabling, Other)
  Sender: AUROBINDO
  Company Number: GB-MLMSERVICE-20240903-PI179979-00029-1

PATIENT
  Age: 7 Decade
  Sex: Female

DRUGS (3)
  1. ACETAMINOPHEN [Suspect]
     Active Substance: ACETAMINOPHEN
     Indication: Headache
     Dosage: UNK
     Route: 065
  2. ACETAMINOPHEN\GUAIFENESIN\PHENYLEPHRINE HYDROCHLORIDE [Suspect]
     Active Substance: ACETAMINOPHEN\GUAIFENESIN\PHENYLEPHRINE HYDROCHLORIDE
     Indication: Rhinitis
     Dosage: 1 DOSAGE FORM (SINGLE DOSE OF THE MEDICATION, AROUND 9?10 O?CLOCK THAT EVENING)
     Route: 065
  3. ACETAMINOPHEN\GUAIFENESIN\PHENYLEPHRINE HYDROCHLORIDE [Suspect]
     Active Substance: ACETAMINOPHEN\GUAIFENESIN\PHENYLEPHRINE HYDROCHLORIDE
     Indication: Cough

REACTIONS (1)
  - Angle closure glaucoma [Recovered/Resolved]
